FAERS Safety Report 14074393 (Version 2)
Quarter: 2017Q4

REPORT INFORMATION
  Report Type: Spontaneous
  Country: US (occurrence: US)
  Receive Date: 20171010
  Receipt Date: 20171030
  Transmission Date: 20180321
  Serious: Yes (Hospitalization)
  Sender: FDA-Public Use
  Company Number: US-MALLINCKRODT-T201704010

PATIENT
  Sex: Female

DRUGS (5)
  1. IBUPROFEN. [Concomitant]
     Active Substance: IBUPROFEN
     Indication: PRODUCT USED FOR UNKNOWN INDICATION
     Dosage: 800 MG
  2. QUETIAPINE FUMARATE. [Concomitant]
     Active Substance: QUETIAPINE FUMARATE
     Indication: PRODUCT USED FOR UNKNOWN INDICATION
  3. H.P. ACTHAR [Suspect]
     Active Substance: CORTICOTROPIN
     Indication: MULTIPLE SCLEROSIS
     Dosage: UNK
     Route: 065
  4. SUBOXONE [Concomitant]
     Active Substance: BUPRENORPHINE HYDROCHLORIDE\NALOXONE HYDROCHLORIDE
     Indication: PRODUCT USED FOR UNKNOWN INDICATION
  5. ALPRAZOLAM. [Concomitant]
     Active Substance: ALPRAZOLAM
     Indication: PRODUCT USED FOR UNKNOWN INDICATION

REACTIONS (6)
  - Multiple sclerosis relapse [Recovered/Resolved]
  - Agitation [Not Recovered/Not Resolved]
  - Foot deformity [Not Recovered/Not Resolved]
  - Drug ineffective [Unknown]
  - Feeling abnormal [Not Recovered/Not Resolved]
  - Confusional state [Not Recovered/Not Resolved]

NARRATIVE: CASE EVENT DATE: 20170927
